FAERS Safety Report 22250588 (Version 8)
Quarter: 2025Q3

REPORT INFORMATION
  Report Type: Report from Study
  Country: CO (occurrence: CO)
  Receive Date: 20230425
  Receipt Date: 20250925
  Transmission Date: 20251021
  Serious: Yes (Hospitalization, Other)
  Sender: TAKEDA
  Company Number: CO-TAKEDA-2022TUS063863

PATIENT
  Age: 62 Year
  Sex: Female
  Weight: 49 kg

DRUGS (7)
  1. VEDOLIZUMAB [Suspect]
     Active Substance: VEDOLIZUMAB
     Indication: Crohn^s disease
  2. VEDOLIZUMAB [Suspect]
     Active Substance: VEDOLIZUMAB
  3. VEDOLIZUMAB [Suspect]
     Active Substance: VEDOLIZUMAB
     Dosage: 300 MILLIGRAM, Q4WEEKS
  4. VEDOLIZUMAB [Suspect]
     Active Substance: VEDOLIZUMAB
  5. VEDOLIZUMAB [Suspect]
     Active Substance: VEDOLIZUMAB
     Dosage: 300 MILLIGRAM, Q4WEEKS
     Dates: end: 20250224
  6. ENALAPRIL [Concomitant]
     Active Substance: ENALAPRIL
     Indication: Hypertension
  7. HYDROCHLOROTHIAZIDE [Concomitant]
     Active Substance: HYDROCHLOROTHIAZIDE
     Indication: Hypertension

REACTIONS (12)
  - Vomiting [Unknown]
  - Chronic obstructive pulmonary disease [Recovering/Resolving]
  - Myocardial infarction [Unknown]
  - Abdominal pain upper [Recovered/Resolved]
  - Dyspnoea [Recovering/Resolving]
  - Abdominal pain [Recovered/Resolved]
  - Malaise [Unknown]
  - Rhinorrhoea [Unknown]
  - Dyspepsia [Recovered/Resolved]
  - Cough [Unknown]
  - Drug ineffective [Unknown]
  - Blood pressure abnormal [Recovered/Resolved]

NARRATIVE: CASE EVENT DATE: 20220908
